FAERS Safety Report 18055064 (Version 1)
Quarter: 2020Q3

REPORT INFORMATION
  Report Type: Spontaneous
  Country: US (occurrence: US)
  Receive Date: 20200722
  Receipt Date: 20200722
  Transmission Date: 20201103
  Serious: Yes (Hospitalization)
  Sender: FDA-Public Use
  Company Number: None

PATIENT
  Age: 51 Year
  Sex: Female

DRUGS (19)
  1. MECLIZINE [Suspect]
     Active Substance: MECLIZINE HYDROCHLORIDE
  2. METHOTREXATE. [Suspect]
     Active Substance: METHOTREXATE
  3. BUPROPION. [Suspect]
     Active Substance: BUPROPION
  4. IBUPROFEN. [Suspect]
     Active Substance: IBUPROFEN
  5. CYCLOBENZAPR [Suspect]
     Active Substance: CYCLOBENZAPRINE
  6. METFORMIN [Suspect]
     Active Substance: METFORMIN HYDROCHLORIDE
  7. OMEPRAZOLE. [Suspect]
     Active Substance: OMEPRAZOLE
  8. NARCAN [Suspect]
     Active Substance: NALOXONE HYDROCHLORIDE
  9. CITALOPRAM [Suspect]
     Active Substance: CITALOPRAM HYDROBROMIDE
  10. ENBREL [Suspect]
     Active Substance: ETANERCEPT
     Indication: RHEUMATOID ARTHRITIS
     Dosage: ?          OTHER DOSE:1 PEN;?
     Route: 058
     Dates: start: 20160224
  11. FOLIC ACID. [Suspect]
     Active Substance: FOLIC ACID
  12. OXYCODONE [Suspect]
     Active Substance: OXYCODONE
  13. TRAZODONE [Suspect]
     Active Substance: TRAZODONE HYDROCHLORIDE
  14. ACYCLOVIR. [Suspect]
     Active Substance: ACYCLOVIR
  15. CEPHALEXIN. [Suspect]
     Active Substance: CEPHALEXIN
  16. FAMOTIDINE. [Suspect]
     Active Substance: FAMOTIDINE
  17. GABAPENTIN. [Suspect]
     Active Substance: GABAPENTIN
  18. MULTIVITAMIN [Suspect]
     Active Substance: VITAMINS
  19. TERBINAFINE. [Suspect]
     Active Substance: TERBINAFINE

REACTIONS (2)
  - Urinary tract infection [None]
  - Kidney infection [None]

NARRATIVE: CASE EVENT DATE: 20200610
